FAERS Safety Report 4882156-X (Version None)
Quarter: 2006Q1

REPORT INFORMATION
  Report Type: 
  Country: None (occurrence: None)
  Receive Date: 20060117
  Receipt Date: 20051005
  Transmission Date: 20060701
  Serious: Yes (Hospitalization, Other)
  Sender: FDA-Public Use
  Company Number: US-MERCK-0510USA04332

PATIENT
  Age: 60 Year
  Sex: Male
  Weight: 86 kg

DRUGS (5)
  1. VIOXX [Suspect]
     Indication: ARTHRITIS
     Route: 048
     Dates: start: 20000101, end: 20030101
  2. VIOXX [Suspect]
     Route: 048
     Dates: start: 20000101, end: 20030101
  3. VIOXX [Suspect]
     Indication: SPINAL DISORDER
     Route: 048
     Dates: start: 20000101, end: 20030101
  4. VIOXX [Suspect]
     Route: 048
     Dates: start: 20000101, end: 20030101
  5. DIOVAN [Concomitant]
     Route: 065

REACTIONS (6)
  - BACK DISORDER [None]
  - CEREBROVASCULAR ACCIDENT [None]
  - HERNIA [None]
  - OVERDOSE [None]
  - RADICULOPATHY [None]
  - TRANSIENT ISCHAEMIC ATTACK [None]
